FAERS Safety Report 4558530-8 (Version None)
Quarter: 2005Q1

REPORT INFORMATION
  Report Type: 
  Country: None (occurrence: None)
  Receive Date: 20050121
  Receipt Date: 20050111
  Transmission Date: 20050727
  Serious: Yes (Other)
  Sender: FDA-Public Use
  Company Number: BE-JNJFOC-20041200493

PATIENT
  Sex: Male

DRUGS (1)
  1. SPORANOX [Suspect]
     Indication: ONYCHOMYCOSIS
     Route: 049

REACTIONS (4)
  - DYSPNOEA [None]
  - DYSPNOEA EXERTIONAL [None]
  - MUSCLE SPASMS [None]
  - PAIN IN EXTREMITY [None]
